FAERS Safety Report 4385358-4 (Version None)
Quarter: 2004Q2

REPORT INFORMATION
  Report Type: 
  Country: None (occurrence: None)
  Receive Date: 20040622
  Receipt Date: 20040608
  Transmission Date: 20050107
  Serious: Yes (Hospitalization)
  Sender: FDA-Public Use
  Company Number: 197888

PATIENT
  Age: 55 Year
  Sex: Female
  Weight: 61.2356 kg

DRUGS (6)
  1. AVONEX [Suspect]
     Indication: MULTIPLE SCLEROSIS
     Dosage: 30 MCG QW IM
     Route: 030
     Dates: end: 20030101
  2. AVONEX [Suspect]
     Indication: MULTIPLE SCLEROSIS
     Dosage: 30 MCG QW IM
     Route: 030
     Dates: start: 20030101
  3. ZESTRIL [Concomitant]
  4. FOSAMAX [Concomitant]
  5. METRO [Concomitant]
  6. PERIDEX [Concomitant]

REACTIONS (4)
  - BACK PAIN [None]
  - BREAST CANCER FEMALE [None]
  - INJECTION SITE INFLAMMATION [None]
  - PAIN IN EXTREMITY [None]
